FAERS Safety Report 20862491 (Version 6)
Quarter: 2023Q4

REPORT INFORMATION
  Report Type: Report from Study
  Country: US (occurrence: US)
  Receive Date: 20220523
  Receipt Date: 20231212
  Transmission Date: 20240110
  Serious: Yes (Hospitalization, Other)
  Sender: FDA-Public Use
  Company Number: US-ABBVIE-22K-163-4405366-00

PATIENT
  Age: 65 Year
  Sex: Male

DRUGS (4)
  1. IMBRUVICA [Suspect]
     Active Substance: IBRUTINIB
     Indication: Chronic lymphocytic leukaemia
     Route: 048
     Dates: start: 20170215
  2. IMBRUVICA [Suspect]
     Active Substance: IBRUTINIB
     Indication: Chronic lymphocytic leukaemia
     Dosage: LAST ADMIN DATE WAS 2017.
     Route: 048
     Dates: start: 201702
  3. IBUPROFEN [Concomitant]
     Active Substance: IBUPROFEN
     Indication: Product used for unknown indication
     Dosage: EVERY FOUR TO SIX HOURS
  4. TYLENOL [Concomitant]
     Active Substance: ACETAMINOPHEN
     Indication: Product used for unknown indication
     Dosage: EVERY FOUR TO SIX HOURS

REACTIONS (11)
  - Spinal operation [Unknown]
  - Petechiae [Unknown]
  - Spinal fusion surgery [Unknown]
  - Dysstasia [Unknown]
  - Spinal cord compression [Unknown]
  - Back pain [Recovering/Resolving]
  - Staphylococcal infection [Recovering/Resolving]
  - White blood cell count decreased [Unknown]
  - Fall [Unknown]
  - Spinal operation [Unknown]
  - Walking aid user [Unknown]

NARRATIVE: CASE EVENT DATE: 20220201
